FAERS Safety Report 25825810 (Version 1)
Quarter: 2025Q3

REPORT INFORMATION
  Report Type: Report from Study
  Country: AR (occurrence: AR)
  Receive Date: 20250919
  Receipt Date: 20250919
  Transmission Date: 20251021
  Serious: Yes (Death, Other)
  Sender: UCB
  Company Number: AR-UCBSA-2025057063

PATIENT
  Age: 76 Year
  Sex: Male

DRUGS (1)
  1. ROTIGOTINE [Suspect]
     Active Substance: ROTIGOTINE
     Indication: Parkinson^s disease
     Dosage: 8 MILLIGRAM, ONCE DAILY (QD)
     Route: 062
     Dates: start: 20220102, end: 20250814

REACTIONS (3)
  - Death [Fatal]
  - Intestinal obstruction [Unknown]
  - Intestinal operation [Unknown]

NARRATIVE: CASE EVENT DATE: 20250814
